FAERS Safety Report 5738573-9 (Version None)
Quarter: 2008Q2

REPORT INFORMATION
  Report Type: 
  Country: None (occurrence: None)
  Receive Date: 20080514
  Receipt Date: 20080514
  Transmission Date: 20081010
  Serious: Yes (Life-Threatening)
  Sender: FDA-Public Use
  Company Number: None

PATIENT
  Age: 48 Year
  Sex: Male
  Weight: 149.6 kg

DRUGS (1)
  1. HURRICAINE SPRAY 20% BENZACAINE BEUTLICH PHARMACEUTICALS [Suspect]
     Indication: NASAL DISCOMFORT
     Dosage: 1 SPRAY PRN TOP
     Route: 061
     Dates: start: 20080213, end: 20080215

REACTIONS (7)
  - HYPOTENSION [None]
  - HYPOXIA [None]
  - LETHARGY [None]
  - MEDICATION ERROR [None]
  - METHAEMOGLOBINAEMIA [None]
  - SKIN DISCOLOURATION [None]
  - TACHYCARDIA [None]
